FAERS Safety Report 7405007-8 (Version None)
Quarter: 2011Q2

REPORT INFORMATION
  Report Type: 
  Country: None (occurrence: None)
  Receive Date: 20110411
  Receipt Date: 20110405
  Transmission Date: 20111010
  Serious: Yes (Other)
  Sender: FDA-Public Use
  Company Number: CH-TEVA-275381ISR

PATIENT
  Sex: Female
  Weight: 64 kg

DRUGS (1)
  1. COPAXONE [Suspect]
     Indication: MULTIPLE SCLEROSIS
     Dosage: 20 MILLIGRAM;
     Route: 058
     Dates: start: 20100702

REACTIONS (3)
  - SKIN NECROSIS [None]
  - FATIGUE [None]
  - NAUSEA [None]
